FAERS Safety Report 12934033 (Version 2)
Quarter: 2016Q4

REPORT INFORMATION
  Report Type: Spontaneous
  Country: BR (occurrence: BR)
  Receive Date: 20161111
  Receipt Date: 20161117
  Transmission Date: 20170207
  Serious: Yes (Other)
  Sender: FDA-Public Use
  Company Number: PHHY2016BR152765

PATIENT
  Age: 9 Year
  Sex: Male
  Weight: 26 kg

DRUGS (1)
  1. AMOXICILLIN + CLAVULANATE POTASSIUM [Suspect]
     Active Substance: AMOXICILLIN\CLAVULANATE POTASSIUM
     Indication: PHARYNGITIS
     Dosage: 10 ML, TID (AMOXICILLIN + CLAVULANATE 250 + 62.5 MG)
     Route: 048
     Dates: start: 20161101, end: 20161103

REACTIONS (5)
  - Myositis [Recovering/Resolving]
  - Drug administration error [Unknown]
  - Abasia [Recovered/Resolved]
  - Pain in extremity [Recovered/Resolved]
  - Incorrect product storage [Unknown]

NARRATIVE: CASE EVENT DATE: 20161102
